FAERS Safety Report 6533393-X (Version None)
Quarter: 2010Q1

REPORT INFORMATION
  Report Type: 
  Country: None (occurrence: None)
  Receive Date: 20100111
  Receipt Date: 20100105
  Transmission Date: 20100710
  Serious: Yes (Other)
  Sender: FDA-Public Use
  Company Number: GB-TEVA-219910ISR

PATIENT
  Age: 35 Year
  Sex: Male

DRUGS (4)
  1. METOCLOPRAMIDE [Suspect]
     Indication: VOMITING
  2. MORPHINE [Suspect]
     Indication: PROCEDURAL PAIN
  3. ONDANSETRON [Suspect]
     Indication: VOMITING
  4. PROCHLORPERAZINE [Suspect]
     Indication: VOMITING

REACTIONS (7)
  - COLLAPSE OF LUNG [None]
  - DIAPHRAGMATIC HERNIA [None]
  - DIAPHRAGMATIC RUPTURE [None]
  - HAEMATOMA [None]
  - INFUSION SITE EXTRAVASATION [None]
  - PLEURAL EFFUSION [None]
  - VOMITING [None]
